FAERS Safety Report 6794013-2 (Version None)
Quarter: 2010Q2

REPORT INFORMATION
  Report Type: 
  Country: None (occurrence: None)
  Receive Date: 20100624
  Receipt Date: 20090630
  Transmission Date: 20101027
  Serious: No
  Sender: FDA-Public Use
  Company Number: US-PFIZER INC-2009161394

PATIENT

DRUGS (1)
  1. GEODON [Suspect]
     Dosage: 40 MG, 2X/DAY

REACTIONS (2)
  - ANXIETY [None]
  - SWELLING [None]
